FAERS Safety Report 6518262-3 (Version None)
Quarter: 2009Q4

REPORT INFORMATION
  Report Type: 
  Country: None (occurrence: None)
  Receive Date: 20091222
  Receipt Date: 20091222
  Transmission Date: 20100525
  Serious: No
  Sender: FDA-Public Use
  Company Number: None

PATIENT
  Sex: Female
  Weight: 77.5651 kg

DRUGS (5)
  1. BUPROPION HCL [Suspect]
     Indication: DISEASE RECURRENCE
     Dosage: BUPROPRION XL 300 MG ONCE A DA BY MOUTH
     Dates: start: 20090301, end: 20091201
  2. BUPROPION HCL [Suspect]
     Indication: MAJOR DEPRESSION
     Dosage: BUPROPRION XL 300 MG ONCE A DA BY MOUTH
     Dates: start: 20090301, end: 20091201
  3. WARFARIN SODIUM [Concomitant]
  4. FERROUS SULFATE TAB [Concomitant]
  5. ADDERALL XR 10 [Concomitant]

REACTIONS (2)
  - DEPRESSION [None]
  - PRODUCT SUBSTITUTION ISSUE [None]
